FAERS Safety Report 13624143 (Version 1)
Quarter: 2017Q2

REPORT INFORMATION
  Report Type: Spontaneous
  Country: IR (occurrence: IR)
  Receive Date: 20170608
  Receipt Date: 20170608
  Transmission Date: 20170830
  Serious: Yes (Life-Threatening, Hospitalization, Other)
  Sender: FDA-Public Use
  Company Number: IR-ACCORD-052269

PATIENT
  Age: 32 Year
  Sex: Female

DRUGS (1)
  1. LETROZOLE. [Suspect]
     Active Substance: LETROZOLE
     Indication: OVULATION INDUCTION
     Dosage: OVER DAYS 3 - 7 OF THE MENSTRUAL CYCLE

REACTIONS (1)
  - Serous cystadenocarcinoma ovary [Recovered/Resolved]
